FAERS Safety Report 7100112-8 (Version None)
Quarter: 2010Q4

REPORT INFORMATION
  Report Type: 
  Country: None (occurrence: None)
  Receive Date: 20101112
  Receipt Date: 20100203
  Transmission Date: 20110411
  Serious: No
  Sender: FDA-Public Use
  Company Number: A0840800A

PATIENT
  Age: 71 Year
  Sex: Male
  Weight: 91.4 kg

DRUGS (6)
  1. COREG [Suspect]
     Indication: HYPERTENSION
     Dosage: 6.25MG TWICE PER DAY
     Route: 048
     Dates: start: 20100101
  2. ACE INHIBITOR [Suspect]
     Route: 065
     Dates: end: 20100101
  3. CELEBREX [Suspect]
     Route: 065
     Dates: end: 20100101
  4. LEVOTHYROXINE [Concomitant]
  5. LYRICA [Concomitant]
  6. ASPIRIN [Concomitant]

REACTIONS (1)
  - HYPERKALAEMIA [None]
